FAERS Safety Report 14734393 (Version 1)
Quarter: 2018Q2

REPORT INFORMATION
  Report Type: Spontaneous
  Country: AU (occurrence: AU)
  Receive Date: 20180409
  Receipt Date: 20180409
  Transmission Date: 20180711
  Serious: Yes (Disabling)
  Sender: FDA-Public Use
  Company Number: IND-AU-009507513-1803AUS008604

PATIENT
  Age: 65 Year
  Sex: Female

DRUGS (3)
  1. SOMAC [Concomitant]
     Active Substance: PANTOPRAZOLE SODIUM
     Dosage: 40 MG, UNK
  2. ROSUZET [Suspect]
     Active Substance: EZETIMIBE\ROSUVASTATIN
     Dosage: 1 TABLET DAILY, STRENGTH 10/20 (UNIT UNKNOWN)
     Route: 048
     Dates: start: 20170510, end: 20170609
  3. COENZYME Q10 PLUS VITAMIN E [Concomitant]
     Dosage: 300 MG, UNK

REACTIONS (2)
  - Musculoskeletal stiffness [Recovering/Resolving]
  - Muscular weakness [Recovering/Resolving]

NARRATIVE: CASE EVENT DATE: 20170519
